FAERS Safety Report 19795712 (Version 5)
Quarter: 2022Q1

REPORT INFORMATION
  Report Type: Report from Study
  Country: US (occurrence: US)
  Receive Date: 20210907
  Receipt Date: 20220224
  Transmission Date: 20220424
  Serious: Yes (Hospitalization)
  Sender: FDA-Public Use
  Company Number: NVSC2021US201087

PATIENT
  Age: 60 Year
  Sex: Female

DRUGS (1)
  1. ENTRESTO [Suspect]
     Active Substance: SACUBITRIL\VALSARTAN
     Indication: Cardiac failure
     Dosage: 1 DF, BID (49/51 MG)
     Route: 048
     Dates: start: 2015

REACTIONS (4)
  - Chest pain [Recovered/Resolved]
  - COVID-19 [Recovered/Resolved]
  - Weight increased [Recovering/Resolving]
  - Stress [Recovered/Resolved]

NARRATIVE: CASE EVENT DATE: 20180901
